FAERS Safety Report 5725990-6 (Version None)
Quarter: 2008Q2

REPORT INFORMATION
  Report Type: 
  Country: None (occurrence: None)
  Receive Date: 20080501
  Receipt Date: 20080501
  Transmission Date: 20081010
  Serious: No
  Sender: FDA-Public Use
  Company Number: None

PATIENT
  Age: 48 Year
  Sex: Female
  Weight: 77.1115 kg

DRUGS (1)
  1. MYSOLINE [Suspect]
     Indication: CONVULSION
     Dosage: 250 MG. 4 X DAILY ORAL 25-30 YRS
     Route: 048

REACTIONS (2)
  - DRUG INTOLERANCE [None]
  - PHARMACEUTICAL PRODUCT COMPLAINT [None]
